FAERS Safety Report 9344288 (Version 4)
Quarter: 2013Q4

REPORT INFORMATION
  Report Type: Spontaneous
  Country: US (occurrence: US)
  Receive Date: 20130612
  Receipt Date: 20131129
  Transmission Date: 20140711
  Serious: No
  Sender: FDA-Public Use
  Company Number: US-PFIZER INC-2013173850

PATIENT
  Age: 65 Year
  Sex: Female
  Weight: 80.73 kg

DRUGS (31)
  1. XELJANZ [Suspect]
     Indication: RHEUMATOID ARTHRITIS
     Dosage: 5 MG, 2X/DAY (TWICE A DAY)
     Route: 048
     Dates: start: 20130311
  2. ASPIRIN [Concomitant]
     Dosage: 325 MG, UNK
     Route: 048
  3. ASPIRIN [Concomitant]
     Dosage: 81 MG, UNK
  4. PRILOSEC [Concomitant]
     Dosage: 20 MG, 1X/DAY
     Route: 048
  5. AMLODIPINE [Concomitant]
     Dosage: 5 MG, UNK
     Route: 048
  6. SIMVASTATIN [Concomitant]
     Dosage: 20 MG, 1X/DAY
     Route: 048
  7. LEUCOVORIN CA [Concomitant]
     Dosage: 10 MG, UNK
     Route: 048
  8. LEUCOVORIN CA [Concomitant]
     Dosage: 5 MG, UNK
  9. METHOTREXATE [Concomitant]
     Dosage: 2.5 MG, UNK
     Route: 048
  10. HUMIRA [Concomitant]
     Dosage: 40 MG, EVERY OTHER WEEK
  11. MTX [Concomitant]
     Dosage: 25 MG, WEEKLY
  12. FOLIC ACID [Concomitant]
     Dosage: 2 MG, 1X/DAY (1 MG 2 QD)
  13. CARDIZEM [Concomitant]
     Dosage: 240 MG, 1X/DAY
  14. ALEVE [Concomitant]
     Dosage: 2X/DAY
  15. ASA [Concomitant]
     Dosage: UNK, 1X/DAY
  16. TYLENOL EXTRA-STRENGTH [Concomitant]
     Dosage: 500 MG, 1X/DAY
  17. FISH OIL [Concomitant]
     Dosage: 1000 MG, 2X/DAY
  18. CALCIUM WITH VITAMIN D [Concomitant]
     Dosage: 500 MG, 1X/DAY
  19. CALCIUM WITH VITAMIN D [Concomitant]
     Dosage: 600 MG, UNK
  20. LEUCOVORIN [Concomitant]
     Dosage: 5 MG, WEEKLY
  21. ACULAR ^ALLERGAN^ [Concomitant]
     Dosage: 1 GTTS, OS
  22. SUDAFED [Concomitant]
     Dosage: 30 MG, AS NEEDED
  23. RESTASIS [Concomitant]
     Dosage: UNK GTT, UNK
  24. ENALAPRIL [Concomitant]
     Dosage: 10 MG, 1X/DAY
  25. MAALOX [Concomitant]
     Dosage: UNK
  26. RANITIDINE HYDROCHLORIDE [Concomitant]
     Dosage: UNK
  27. TYLENOL [Concomitant]
     Dosage: UNK
  28. DEXAMETHASONE [Concomitant]
     Dosage: 2 MG, UNK
  29. CERTOLIZUMAB PEGOL [Concomitant]
     Dosage: 200 MG, Q 2 WK
  30. VITAMIN D [Concomitant]
     Dosage: 1000 UNIT
  31. BIOTIN [Concomitant]
     Dosage: UNK

REACTIONS (7)
  - Increased appetite [Unknown]
  - Insomnia [Unknown]
  - Hot flush [Unknown]
  - Temperature intolerance [Not Recovered/Not Resolved]
  - Urticaria [Not Recovered/Not Resolved]
  - Weight increased [Unknown]
  - Food craving [Unknown]
